FAERS Safety Report 10344595 (Version 1)
Quarter: 2014Q3

REPORT INFORMATION
  Report Type: Spontaneous
  Country: US (occurrence: US)
  Receive Date: 20140728
  Receipt Date: 20140728
  Transmission Date: 20150326
  Serious: No
  Sender: FDA-Public Use
  Company Number: 2014SP003700

PATIENT
  Age: 14 Year
  Sex: Female
  Weight: 47.63 kg

DRUGS (3)
  1. METHOTREXATE [Suspect]
     Active Substance: METHOTREXATE
     Indication: SYSTEMIC LUPUS ERYTHEMATOSUS
     Route: 048
  2. METHOTREXATE [Suspect]
     Active Substance: METHOTREXATE
     Indication: SYSTEMIC LUPUS ERYTHEMATOSUS
     Route: 048
  3. HYDROXYCHLOROQUINE PHOSPHATE [Concomitant]
     Indication: SYSTEMIC LUPUS ERYTHEMATOSUS

REACTIONS (4)
  - Abdominal pain upper [Not Recovered/Not Resolved]
  - Off label use [Unknown]
  - Incorrect route of drug administration [Unknown]
  - Dysphagia [Unknown]
